FAERS Safety Report 9462881 (Version 1)
Quarter: 2013Q3

REPORT INFORMATION
  Report Type: Report from Study
  Country: US (occurrence: US)
  Receive Date: 20130816
  Receipt Date: 20130816
  Transmission Date: 20140515
  Serious: Yes (Hospitalization, Other)
  Sender: FDA-Public Use
  Company Number: US-ABBOTT-13P-163-1130585-00

PATIENT
  Age: 38 Year
  Sex: Female
  Weight: 65.83 kg

DRUGS (14)
  1. HUMIRA [Suspect]
     Indication: CROHN^S DISEASE
     Dates: start: 200904, end: 200904
  2. HUMIRA [Suspect]
     Indication: PSORIATIC ARTHROPATHY
     Dosage: ONE DOSE, 2 WEEKS AFTER LAST DOSE
     Dates: start: 2009, end: 2009
  3. HUMIRA [Suspect]
     Dosage: 4 WEEKS AFTER LAST DOSE
     Dates: start: 2009
  4. HUMIRA [Suspect]
     Dates: end: 20130529
  5. METHOTREXATE [Suspect]
     Indication: CROHN^S DISEASE
     Dates: end: 20130604
  6. METHOTREXATE [Suspect]
     Indication: PSORIATIC ARTHROPATHY
  7. DROSPIRENONE W/ETHINYLESTRADIOL [Suspect]
     Indication: CONTRACEPTION
  8. LIALDA [Concomitant]
     Indication: CROHN^S DISEASE
  9. CELEBREX [Concomitant]
     Indication: PSORIATIC ARTHROPATHY
  10. FLUOXETINE [Concomitant]
     Indication: DEPRESSION
  11. OMEPRAZOLE [Concomitant]
     Indication: GASTROOESOPHAGEAL REFLUX DISEASE
  12. VITAMIN B12 [Concomitant]
     Indication: CROHN^S DISEASE
  13. PREDNISONE [Concomitant]
     Indication: CROHN^S DISEASE
  14. PREDNISONE [Concomitant]
     Indication: PSORIATIC ARTHROPATHY

REACTIONS (11)
  - Developmental hip dysplasia [Recovered/Resolved]
  - Unevaluable event [Recovered/Resolved]
  - Femoroacetabular impingement [Recovered/Resolved]
  - Thrombosis [Not Recovered/Not Resolved]
  - Staphylococcal infection [Not Recovered/Not Resolved]
  - Pain in extremity [Not Recovered/Not Resolved]
  - Bacterial infection [Not Recovered/Not Resolved]
  - Wound infection [Recovering/Resolving]
  - Developmental hip dysplasia [Not Recovered/Not Resolved]
  - Impaired healing [Not Recovered/Not Resolved]
  - Crohn^s disease [Recovered/Resolved]
